FAERS Safety Report 9346012 (Version 2)
Quarter: 2013Q3

REPORT INFORMATION
  Report Type: Report from Study
  Country: IT (occurrence: IT)
  Receive Date: 20130613
  Receipt Date: 20130813
  Transmission Date: 20140515
  Serious: Yes (Hospitalization)
  Sender: FDA-Public Use
  Company Number: IT-ROCHE-1234971

PATIENT
  Age: 48 Year
  Sex: Female

DRUGS (30)
  1. TRASTUZUMAB [Suspect]
     Indication: BREAST CANCER
     Dosage: LAST DOSE PRIOR OT SAE:05/JUN/2013
     Route: 042
     Dates: start: 20130605
  2. PERTUZUMAB [Suspect]
     Indication: BREAST CANCER
     Dosage: LAST DOSE PRIOR TO SAE: 05/JUN/2013
     Route: 042
     Dates: start: 20130605
  3. VALSARTAN [Concomitant]
     Dosage: 80/12.5
     Route: 065
     Dates: start: 200905
  4. ALPRAZOLAM [Concomitant]
     Route: 065
     Dates: start: 20130605
  5. ALPRAZOLAM [Concomitant]
     Route: 065
     Dates: start: 200610
  6. ESOMEPRAZOLE [Concomitant]
     Route: 065
     Dates: start: 200610
  7. ESOMEPRAZOLE [Concomitant]
     Route: 065
     Dates: start: 20130605, end: 20130605
  8. RANITIDINE [Concomitant]
     Route: 065
     Dates: start: 20130606, end: 20130606
  9. RANITIDINE [Concomitant]
     Route: 065
     Dates: start: 20130625, end: 20130625
  10. RANITIDINE [Concomitant]
     Route: 065
     Dates: start: 20130716, end: 20130716
  11. RANITIDINE [Concomitant]
     Route: 065
     Dates: start: 20130730, end: 20130730
  12. RANITIDINE [Concomitant]
     Route: 065
     Dates: start: 20130723, end: 20130723
  13. DEXAMETHASONE [Concomitant]
     Route: 065
     Dates: start: 20130606, end: 20130606
  14. DEXAMETHASONE [Concomitant]
     Route: 065
     Dates: start: 20130625, end: 20130625
  15. CHLORPHENAMINE [Concomitant]
     Route: 065
     Dates: start: 20130606, end: 20130606
  16. CHLORPHENAMINE [Concomitant]
     Route: 065
     Dates: start: 20130625, end: 20130625
  17. CHLORPHENAMINE [Concomitant]
     Route: 065
     Dates: start: 20130716, end: 20130716
  18. CHLORPHENAMINE [Concomitant]
     Route: 065
     Dates: start: 20130730, end: 20130730
  19. CHLORPHENAMINE [Concomitant]
     Route: 065
     Dates: start: 20130723, end: 20130723
  20. PREDNISONE [Concomitant]
     Route: 065
     Dates: start: 20130624, end: 20130626
  21. PREDNISONE [Concomitant]
     Route: 065
     Dates: start: 20130624, end: 20130626
  22. PREDNISONE [Concomitant]
     Route: 065
     Dates: start: 20130715, end: 20130717
  23. HYDROCORTISONE [Concomitant]
     Route: 065
     Dates: start: 20130716, end: 20130716
  24. HYDROCORTISONE [Concomitant]
     Route: 065
     Dates: start: 20130730, end: 20130730
  25. HYDROCORTISONE [Concomitant]
     Route: 065
     Dates: start: 20130723, end: 20130723
  26. GRANISETRON [Concomitant]
     Route: 065
     Dates: start: 20130605, end: 20130606
  27. GRANISETRON [Concomitant]
     Route: 065
     Dates: start: 20130625, end: 20130625
  28. GRANISETRON [Concomitant]
     Route: 065
     Dates: start: 20130716, end: 20130716
  29. GRANISETRON [Concomitant]
     Route: 065
     Dates: start: 20130730, end: 20130730
  30. GRANISETRON [Concomitant]
     Route: 065
     Dates: start: 20130723, end: 20130723

REACTIONS (1)
  - Infusion related reaction [Recovered/Resolved]
